FAERS Safety Report 10224024 (Version 2)
Quarter: 2014Q2

REPORT INFORMATION
  Report Type: Spontaneous
  Country: US (occurrence: None)
  Receive Date: 20140605
  Receipt Date: 20140618
  Transmission Date: 20141212
  Serious: Yes (Death, Other)
  Sender: FDA-Public Use
  Company Number: ADR-2014-00943

PATIENT
  Age: 77 Year
  Sex: Male

DRUGS (2)
  1. COMPOUNDED BACLOFEN [Suspect]
     Indication: CANCER PAIN
  2. BUPIVACAINE [Suspect]
     Indication: CANCER PAIN

REACTIONS (3)
  - Lung neoplasm malignant [None]
  - Malignant neoplasm progression [None]
  - Malignant neoplasm progression [None]
